FAERS Safety Report 10715407 (Version 2)
Quarter: 2015Q1

REPORT INFORMATION
  Report Type: Report from Study
  Country: FR (occurrence: FR)
  Receive Date: 20150116
  Receipt Date: 20150119
  Transmission Date: 20150721
  Serious: Yes (Hospitalization)
  Sender: FDA-Public Use
  Company Number: FR-ROCHE-1519296

PATIENT
  Age: 60 Year
  Sex: Male
  Weight: 78 kg

DRUGS (2)
  1. RITUXIMAB [Suspect]
     Active Substance: RITUXIMAB
     Indication: ANTI-NEUTROPHIL CYTOPLASMIC ANTIBODY POSITIVE VASCULITIS
     Route: 041
     Dates: start: 20130424
  2. CORTANCYL [Concomitant]
     Active Substance: PREDNISONE
     Route: 065

REACTIONS (4)
  - Bronchitis [Recovered/Resolved]
  - Oxygen saturation decreased [Recovered/Resolved]
  - Malaise [Recovered/Resolved]
  - Chronic obstructive pulmonary disease [Recovered/Resolved]

NARRATIVE: CASE EVENT DATE: 20141116
